FAERS Safety Report 23371858 (Version 1)
Quarter: 2024Q1

REPORT INFORMATION
  Report Type: Spontaneous
  Country: NL (occurrence: NL)
  Receive Date: 20240105
  Receipt Date: 20240105
  Transmission Date: 20240409
  Serious: Yes (Life-Threatening, Hospitalization, Other)
  Sender: FDA-Public Use
  Company Number: None

PATIENT
  Age: 44 Year
  Sex: Male
  Weight: 75 kg

DRUGS (1)
  1. SUGAMMADEX SODIUM [Suspect]
     Active Substance: SUGAMMADEX SODIUM
     Indication: Reversal of analgesia
     Dosage: 100MG, ONCE REPORTED AS ONE TIME
     Dates: start: 20231221, end: 20231221

REACTIONS (1)
  - Anaphylactic shock [Not Recovered/Not Resolved]
